FAERS Safety Report 23471047 (Version 1)
Quarter: 2024Q1

REPORT INFORMATION
  Report Type: Spontaneous
  Country: CN (occurrence: CN)
  Receive Date: 20240202
  Receipt Date: 20240202
  Transmission Date: 20240410
  Serious: Yes (Hospitalization, Other)
  Sender: FDA-Public Use
  Company Number: CN-SA-2024SA033994

PATIENT
  Age: 71 Year
  Sex: Male

DRUGS (4)
  1. DUPILUMAB [Suspect]
     Active Substance: DUPILUMAB
     Indication: Dermatitis atopic
     Dosage: 600 MG
     Route: 058
  2. DUPILUMAB [Suspect]
     Active Substance: DUPILUMAB
     Dosage: 300 MG (IH Q2W)
  3. DEXAMETHASONE [Suspect]
     Active Substance: DEXAMETHASONE
     Indication: Dermatitis atopic
     Dosage: CREAM
     Route: 061
  4. OXYGEN [Concomitant]
     Active Substance: OXYGEN
     Indication: Cor pulmonale
     Dosage: CONTINUOUS
     Route: 055

REACTIONS (9)
  - Eosinophilic pneumonia acute [Recovering/Resolving]
  - Pyrexia [Recovering/Resolving]
  - Cough [Recovering/Resolving]
  - Sputum abnormal [Recovering/Resolving]
  - Dyspnoea [Recovering/Resolving]
  - Interstitial lung disease [Recovering/Resolving]
  - Cytomegalovirus infection [Recovering/Resolving]
  - Herpes simplex [Recovering/Resolving]
  - Inflammation [Recovering/Resolving]
